FAERS Safety Report 5656476-5 (Version None)
Quarter: 2008Q1

REPORT INFORMATION
  Report Type: 
  Country: None (occurrence: None)
  Receive Date: 20080309
  Receipt Date: 20080118
  Transmission Date: 20080703
  Serious: No
  Sender: FDA-Public Use
  Company Number: US-BAYER-200810345BCC

PATIENT
  Age: 83 Year
  Sex: Female
  Weight: 56 kg

DRUGS (9)
  1. ALEVE [Suspect]
     Indication: MUSCULOSKELETAL PAIN
     Dosage: TOTAL DAILY DOSE: 220 MG  UNIT DOSE: 220 MG
     Route: 048
     Dates: start: 20080101
  2. CORTISONE SHOT [Concomitant]
  3. ATIVAN [Concomitant]
  4. RYTHMOL [Concomitant]
  5. TOPROL [Concomitant]
  6. K-DUR 10 [Concomitant]
  7. COZAAR [Concomitant]
  8. IRON SUPPLEMENT [Concomitant]
  9. ENABLEX [Concomitant]

REACTIONS (1)
  - DIZZINESS [None]
